FAERS Safety Report 5062303-X (Version None)
Quarter: 2006Q3

REPORT INFORMATION
  Report Type: 
  Country: None (occurrence: None)
  Receive Date: 20060721
  Receipt Date: 20060719
  Transmission Date: 20061208
  Serious: Yes (Other)
  Sender: FDA-Public Use
  Company Number: HQWYE287020JUN06

PATIENT
  Age: 23 Year
  Sex: Male
  Weight: 77.18 kg

DRUGS (3)
  1. ADVIL PM [Suspect]
     Indication: INSOMNIA
     Dosage: 2 TABLET 1X PER 1 DAY, ORAL
     Route: 048
     Dates: start: 20060614, end: 20060614
  2. ADVIL PM [Suspect]
     Indication: PAIN IN EXTREMITY
     Dosage: 2 TABLET 1X PER 1 DAY, ORAL
     Route: 048
     Dates: start: 20060614, end: 20060614
  3. DEXEDRINE [Concomitant]

REACTIONS (7)
  - BLOOD PRESSURE INCREASED [None]
  - DISORIENTATION [None]
  - DYSPNOEA [None]
  - FATIGUE [None]
  - HYPERHIDROSIS [None]
  - SHOCK [None]
  - SKIN DISCOLOURATION [None]
